FAERS Safety Report 11934661 (Version 2)
Quarter: 2016Q4

REPORT INFORMATION
  Report Type: Spontaneous
  Country: US (occurrence: US)
  Receive Date: 20160121
  Receipt Date: 20161221
  Transmission Date: 20170206
  Serious: No
  Sender: FDA-Public Use
  Company Number: US-ENDO PHARMACEUTICALS INC.-2015-002533

PATIENT
  Age: 33 Year
  Sex: Female
  Weight: 67.65 kg

DRUGS (2)
  1. OPANA ER [Suspect]
     Active Substance: OXYMORPHONE HYDROCHLORIDE
     Indication: PAIN
     Route: 048
     Dates: start: 20150812, end: 20150902
  2. OXYCODONE 20MG [Concomitant]
     Indication: BREAKTHROUGH PAIN

REACTIONS (6)
  - Cold sweat [Recovering/Resolving]
  - Abdominal pain [Recovering/Resolving]
  - Nausea [Recovering/Resolving]
  - Drug effect decreased [Recovering/Resolving]
  - Drug ineffective [Unknown]
  - Back pain [Recovering/Resolving]

NARRATIVE: CASE EVENT DATE: 20150817
